FAERS Safety Report 17658943 (Version 1)
Quarter: 2020Q2

REPORT INFORMATION
  Report Type: Report from Study
  Country: None (occurrence: BR)
  Receive Date: 20200413
  Receipt Date: 20200413
  Transmission Date: 20200713
  Serious: Yes (Hospitalization, Other)
  Sender: FDA-Public Use
  Company Number: BR-ABBVIE-20K-020-3358560-00

PATIENT
  Sex: Female
  Weight: 93 kg

DRUGS (3)
  1. HUMIRA [Suspect]
     Active Substance: ADALIMUMAB
     Dosage: LOADING DOSE?UNSPECIFIED DOSE
     Route: 058
  2. HUMIRA [Suspect]
     Active Substance: ADALIMUMAB
     Indication: CROHN^S DISEASE
     Dosage: ONE UNSPECIFIED DOSE
     Route: 058
     Dates: start: 20100101
  3. HUMIRA [Suspect]
     Active Substance: ADALIMUMAB
     Dosage: ONE UNSPECIFIED DOSE
     Route: 058

REACTIONS (20)
  - Ileectomy [Recovered/Resolved]
  - Gingival cyst [Unknown]
  - Crohn^s disease [Recovering/Resolving]
  - Hypersensitivity [Recovering/Resolving]
  - Hepatic cyst [Unknown]
  - Purulent discharge [Recovered/Resolved]
  - Pleural effusion [Unknown]
  - Gastrointestinal infection [Recovered/Resolved]
  - Dyspnoea [Unknown]
  - Intestinal stenosis [Unknown]
  - Cyst [Unknown]
  - Pyrexia [Unknown]
  - Arthralgia [Recovering/Resolving]
  - Intestinal perforation [Recovered/Resolved]
  - Fistula of small intestine [Recovered/Resolved]
  - Gastrointestinal inflammation [Unknown]
  - Abdominal abscess [Unknown]
  - Intestinal obstruction [Recovered/Resolved]
  - Gastrointestinal procedural complication [Recovered/Resolved]
  - Postoperative wound infection [Recovered/Resolved]

NARRATIVE: CASE EVENT DATE: 2016
